FAERS Safety Report 6544488-9 (Version None)
Quarter: 2010Q1

REPORT INFORMATION
  Report Type: 
  Country: None (occurrence: None)
  Receive Date: 20100121
  Receipt Date: 20100118
  Transmission Date: 20100710
  Serious: Yes (Hospitalization)
  Sender: FDA-Public Use
  Company Number: FR-ROCHE-680175

PATIENT
  Age: 87 Year
  Sex: Male

DRUGS (14)
  1. ROCEPHIN [Suspect]
     Route: 065
     Dates: start: 20091204, end: 20091213
  2. FLAGYL [Suspect]
     Route: 065
     Dates: start: 20091204, end: 20091213
  3. GENTAMICINE [Concomitant]
     Dosage: ONE SINGLE INJECTION
     Dates: start: 20091204, end: 20091204
  4. FUROSEMIDE [Concomitant]
  5. DIFFU K [Concomitant]
  6. KARDEGIC [Concomitant]
  7. DI-HYDAN [Concomitant]
  8. TEGRETOL [Concomitant]
  9. HEMIGOXINE NATIVELLE [Concomitant]
     Dosage: DRUG REPORTED: HEMIGOXINE
  10. CLONAZEPAM [Concomitant]
  11. DOLIPRANE [Concomitant]
  12. TRIMEBUTINE [Concomitant]
  13. TRANSULOSE [Concomitant]
  14. AMLOR [Concomitant]
     Dates: start: 20091117

REACTIONS (1)
  - ACUTE GENERALISED EXANTHEMATOUS PUSTULOSIS [None]
